FAERS Safety Report 19150202 (Version 2)
Quarter: 2021Q2

REPORT INFORMATION
  Report Type: Report from Study
  Country: BR (occurrence: BR)
  Receive Date: 20210417
  Receipt Date: 20210427
  Transmission Date: 20210717
  Serious: Yes (Death, Hospitalization, Other)
  Sender: FDA-Public Use
  Company Number: BR-UCBSA-2021017745

PATIENT
  Age: 79 Year
  Sex: Female
  Weight: 40 kg

DRUGS (7)
  1. HYDROXYCHLOROQUINE [Concomitant]
     Active Substance: HYDROXYCHLOROQUINE
     Indication: RHEUMATOID ARTHRITIS
     Dosage: UNK
     Route: 048
  2. PREDNISONE. [Concomitant]
     Active Substance: PREDNISONE
     Indication: PAIN
     Dosage: UNK
     Route: 048
  3. METHOTREXATE. [Concomitant]
     Active Substance: METHOTREXATE
     Indication: RHEUMATOID ARTHRITIS
     Dosage: UNK
     Route: 048
  4. METFORMIN [Concomitant]
     Active Substance: METFORMIN HYDROCHLORIDE
     Indication: DIABETES MELLITUS
     Dosage: UNK
     Route: 048
  5. RISEDROSS [Concomitant]
     Active Substance: RISEDRONATE SODIUM
     Indication: OSTEOPOROSIS
     Dosage: 1 DOSAGE FORM, WEEKLY (QW)
     Route: 048
  6. CERTOLIZUMAB PEGOL [Suspect]
     Active Substance: CERTOLIZUMAB PEGOL
     Indication: RHEUMATOID ARTHRITIS
     Dosage: UNK
     Route: 058
     Dates: end: 20200929
  7. DERSANI ORIGINAL [Concomitant]
     Indication: BLISTER
     Route: 061

REACTIONS (9)
  - Pneumonia [Fatal]
  - Systemic infection [Fatal]
  - Weight decreased [Unknown]
  - Asthenia [Unknown]
  - Blister [Unknown]
  - Dementia [Unknown]
  - Renal failure [Fatal]
  - Aspiration [Unknown]
  - COVID-19 [Unknown]

NARRATIVE: CASE EVENT DATE: 202008
